FAERS Safety Report 10749619 (Version 1)
Quarter: 2015Q1

REPORT INFORMATION
  Report Type: Other
  Country: DE (occurrence: DE)
  Receive Date: 20150129
  Receipt Date: 20150129
  Transmission Date: 20150721
  Serious: Yes (Congenital Anomaly, Other)
  Sender: FDA-Public Use
  Company Number: DE-MYLANLABS-2015M1001463

PATIENT

DRUGS (1)
  1. CLOZAPIN [Suspect]
     Active Substance: CLOZAPINE
     Indication: SCHIZOPHRENIA
     Dosage: 100 MG, BID (200 [MG/D (2X100 BIS 2X 50 MG/D) ])
     Route: 064
     Dates: start: 20140119, end: 20141027

REACTIONS (9)
  - Vitello-intestinal duct remnant [Unknown]
  - Feeding disorder neonatal [Recovered/Resolved]
  - Anal atresia [Recovered/Resolved with Sequelae]
  - Ventricular septal defect [Not Recovered/Not Resolved]
  - Atrial septal defect [Recovering/Resolving]
  - Enterovesical fistula [Not Recovered/Not Resolved]
  - Somnolence [Recovered/Resolved]
  - Cryptorchism [Not Recovered/Not Resolved]
  - Foetal exposure during pregnancy [Unknown]

NARRATIVE: CASE EVENT DATE: 20141027
